FAERS Safety Report 9747470 (Version 1)
Quarter: 2013Q4

REPORT INFORMATION
  Report Type: Spontaneous
  Country: US (occurrence: US)
  Receive Date: 20131212
  Receipt Date: 20131212
  Transmission Date: 20140711
  Serious: No
  Sender: FDA-Public Use
  Company Number: US-009507513-1311USA005615

PATIENT
  Sex: Female

DRUGS (1)
  1. INTRONA [Suspect]
     Indication: HEPATITIS C
     Dosage: 2.26 ML, MONDAY-WEDNESDAY-FRIDAY
     Route: 058
     Dates: end: 20131106

REACTIONS (6)
  - Mental impairment [Unknown]
  - Injection site pain [Unknown]
  - Influenza like illness [Unknown]
  - Headache [Unknown]
  - Fatigue [Unknown]
  - Insomnia [Unknown]
